FAERS Safety Report 25625368 (Version 1)
Quarter: 2025Q3

REPORT INFORMATION
  Report Type: Spontaneous
  Country: US (occurrence: US)
  Receive Date: 20250731
  Receipt Date: 20250731
  Transmission Date: 20251020
  Serious: Yes (Other)
  Sender: ROCHE
  Company Number: US-ROCHE-10000351263

PATIENT
  Age: 75 Year
  Sex: Male

DRUGS (2)
  1. TECENTRIQ [Suspect]
     Active Substance: ATEZOLIZUMAB
     Indication: Product used for unknown indication
     Route: 065
  2. SIPULEUCEL-T [Suspect]
     Active Substance: SIPULEUCEL-T
     Indication: Product used for unknown indication
     Route: 065

REACTIONS (13)
  - Syncope [Unknown]
  - Tachycardia [Unknown]
  - Fatigue [Unknown]
  - Lactic acidosis [Unknown]
  - Constipation [Unknown]
  - Cholecystitis acute [Unknown]
  - Abdominal pain [Unknown]
  - Immune system disorder [Unknown]
  - Pyrexia [Unknown]
  - Dehydration [Unknown]
  - Systemic inflammatory response syndrome [Unknown]
  - Wound infection [Unknown]
  - Vomiting [Unknown]
